FAERS Safety Report 7250228-0 (Version None)
Quarter: 2011Q1

REPORT INFORMATION
  Report Type: 
  Country: None (occurrence: None)
  Receive Date: 20110128
  Receipt Date: 20110108
  Transmission Date: 20110831
  Serious: Yes (Disabling, Other)
  Sender: FDA-Public Use
  Company Number: IT-BAYER-2010-000621

PATIENT
  Sex: Male

DRUGS (2)
  1. NEXAVAR [Suspect]
     Indication: HEPATIC NEOPLASM MALIGNANT
     Dosage: 400 MG, QD
     Route: 048
     Dates: start: 20081212, end: 20091226
  2. NEXAVAR [Suspect]
     Dosage: UNK
     Dates: start: 20090112, end: 20090112

REACTIONS (3)
  - ERYTHEMA [None]
  - VASCULITIS [None]
  - PRURITUS [None]
